FAERS Safety Report 5939139-8 (Version None)
Quarter: 2008Q4

REPORT INFORMATION
  Report Type: 
  Country: None (occurrence: None)
  Receive Date: 20081103
  Receipt Date: 20081027
  Transmission Date: 20090506
  Serious: Yes (Other)
  Sender: FDA-Public Use
  Company Number: GB-ASTRAZENECA-2008GB02027

PATIENT
  Age: 800 Month
  Sex: Female

DRUGS (1)
  1. DIPRIVAN [Suspect]
     Indication: ANAESTHESIA
     Route: 042
     Dates: start: 20071201, end: 20071201

REACTIONS (2)
  - DYSKINESIA [None]
  - EYELID PTOSIS [None]
